FAERS Safety Report 21838108 (Version 7)
Quarter: 2024Q2

REPORT INFORMATION
  Report Type: Report from Study
  Country: BR (occurrence: BR)
  Receive Date: 20230109
  Receipt Date: 20240401
  Transmission Date: 20240716
  Serious: No
  Sender: FDA-Public Use
  Company Number: BR-JNJFOC-20221261725

PATIENT
  Sex: Male
  Weight: 83 kg

DRUGS (3)
  1. TREMFYA [Suspect]
     Active Substance: GUSELKUMAB
     Indication: Psoriasis
     Dosage: TREATMENT START DATE: 06-MAY-2022 (BY PSP) AND 07-MAY-2022 OR 08-MAY-2022 (BY PATIENT)
     Route: 058
     Dates: start: 20220506
  2. TREMFYA [Suspect]
     Active Substance: GUSELKUMAB
     Route: 065
     Dates: start: 20220506
  3. CYCLOSPORINE [Concomitant]
     Active Substance: CYCLOSPORINE

REACTIONS (7)
  - Syringe issue [Unknown]
  - Device issue [Unknown]
  - Incorrect dose administered [Unknown]
  - Product dose omission issue [Unknown]
  - Arthritis [Unknown]
  - Foot deformity [Unknown]
  - Off label use [Unknown]

NARRATIVE: CASE EVENT DATE: 20221226
